FAERS Safety Report 7484889-8 (Version None)
Quarter: 2011Q2

REPORT INFORMATION
  Report Type: 
  Country: None (occurrence: None)
  Receive Date: 20110517
  Receipt Date: 20110509
  Transmission Date: 20111010
  Serious: Yes (Death)
  Sender: FDA-Public Use
  Company Number: A0923374A

PATIENT
  Age: 52 Year
  Sex: Male
  Weight: 55 kg

DRUGS (3)
  1. EPZICOM [Suspect]
     Dosage: 1TAB PER DAY
     Route: 048
     Dates: start: 20100726
  2. VIRAMUNE [Concomitant]
     Dosage: 200MG UNKNOWN
     Route: 048
     Dates: start: 20100726, end: 20110111
  3. VALTREX [Suspect]
     Dosage: 1G PER DAY
     Route: 048
     Dates: start: 20110101, end: 20110329

REACTIONS (1)
  - DEATH [None]
